FAERS Safety Report 9290716 (Version 3)
Quarter: 2013Q4

REPORT INFORMATION
  Report Type: Spontaneous
  Country: BE (occurrence: BE)
  Receive Date: 20130515
  Receipt Date: 20131021
  Transmission Date: 20140711
  Serious: Yes (Other)
  Sender: FDA-Public Use
  Company Number: BE-JNJFOC-20130504641

PATIENT
  Sex: Female
  Weight: 58 kg

DRUGS (2)
  1. XARELTO [Suspect]
     Indication: CEREBROVASCULAR ACCIDENT PROPHYLAXIS
     Route: 048
  2. XARELTO [Suspect]
     Indication: ATRIAL FIBRILLATION
     Route: 048

REACTIONS (4)
  - Cerebrovascular accident [Unknown]
  - Renal impairment [Unknown]
  - Anticoagulation drug level above therapeutic [Unknown]
  - Haemoglobin decreased [Unknown]
